FAERS Safety Report 5826230-X (Version None)
Quarter: 2008Q3

REPORT INFORMATION
  Report Type: 
  Country: None (occurrence: None)
  Receive Date: 20080729
  Receipt Date: 20080717
  Transmission Date: 20090109
  Serious: Yes (Other)
  Sender: FDA-Public Use
  Company Number: US-PFIZER INC-2008060422

PATIENT
  Sex: Female

DRUGS (5)
  1. CHANTIX [Suspect]
  2. DEPAKOTE [Concomitant]
  3. DILANTIN [Concomitant]
  4. ANTIDEPRESSANTS [Concomitant]
  5. ALL OTHER THERAPEUTIC PRODUCTS [Concomitant]

REACTIONS (3)
  - DEPRESSED MOOD [None]
  - SCREAMING [None]
  - SUICIDAL BEHAVIOUR [None]
